FAERS Safety Report 12788696 (Version 2)
Quarter: 2016Q4

REPORT INFORMATION
  Report Type: Report from Study
  Country: None (occurrence: US)
  Receive Date: 20160928
  Receipt Date: 20161020
  Transmission Date: 20170207
  Serious: Yes (Hospitalization, Other)
  Sender: FDA-Public Use
  Company Number: US-ABBVIE-16K-163-1738799-00

PATIENT
  Age: 52 Year
  Sex: Male
  Weight: 86.71 kg

DRUGS (2)
  1. LISINOPRIL. [Concomitant]
     Active Substance: LISINOPRIL
     Indication: HYPERTENSION
  2. HUMIRA [Suspect]
     Active Substance: ADALIMUMAB
     Indication: CROHN^S DISEASE
     Route: 058
     Dates: start: 201509, end: 201609

REACTIONS (6)
  - Dysuria [Not Recovered/Not Resolved]
  - Post procedural complication [Not Recovered/Not Resolved]
  - Anal stenosis [Recovering/Resolving]
  - Haemorrhoids [Unknown]
  - Anal fissure [Unknown]
  - Pain [Recovering/Resolving]

NARRATIVE: CASE EVENT DATE: 2016
